FAERS Safety Report 6571257-6 (Version None)
Quarter: 2010Q1

REPORT INFORMATION
  Report Type: 
  Country: None (occurrence: None)
  Receive Date: 20100204
  Receipt Date: 20100128
  Transmission Date: 20100710
  Serious: Yes (Hospitalization)
  Sender: FDA-Public Use
  Company Number: IT-ABBOTT-09P-083-0603226-00

PATIENT
  Sex: Female

DRUGS (2)
  1. ENANTONE 11.25 MG [Suspect]
     Indication: DRUG USE FOR UNKNOWN INDICATION
     Dates: start: 20090611
  2. TAMOXIFEN CITRATE [Suspect]
     Indication: DRUG USE FOR UNKNOWN INDICATION
     Dates: start: 20090601, end: 20091011

REACTIONS (1)
  - CEREBRAL ARTERY THROMBOSIS [None]
